FAERS Safety Report 19090729 (Version 1)
Quarter: 2021Q2

REPORT INFORMATION
  Report Type: Spontaneous
  Country: IT (occurrence: IT)
  Receive Date: 20210405
  Receipt Date: 20210405
  Transmission Date: 20210717
  Serious: Yes (Death, Other)
  Sender: FDA-Public Use
  Company Number: IT-TEVA-2021-IT-1898142

PATIENT
  Age: 70 Year
  Sex: Male

DRUGS (5)
  1. CAPECITABINE. [Suspect]
     Active Substance: CAPECITABINE
     Indication: POROCARCINOMA
     Dosage: 1000 MILLIGRAM DAILY; METRONOMIC DOSE OF CAPECITABINE; TOTAL SEVEN DOSES WERE ADMINISTERED
     Route: 065
     Dates: end: 202006
  2. CETUXIMAB. [Concomitant]
     Active Substance: CETUXIMAB
     Indication: POROCARCINOMA
     Route: 065
     Dates: start: 2020, end: 2020
  3. PEMBROLIZUMAB. [Suspect]
     Active Substance: PEMBROLIZUMAB
     Indication: POROCARCINOMA
     Route: 065
     Dates: end: 201912
  4. DOCETAXEL. [Suspect]
     Active Substance: DOCETAXEL
     Indication: POROCARCINOMA
     Dosage: 35 MG/MQ/WEEK; DISCONTINUED AFTER SEVEN DOSES
     Route: 065
  5. CETUXIMAB. [Concomitant]
     Active Substance: CETUXIMAB
     Route: 065
     Dates: start: 2020, end: 2020

REACTIONS (5)
  - Superinfection [Unknown]
  - Skin toxicity [Unknown]
  - Drug ineffective [Unknown]
  - Palmar-plantar erythrodysaesthesia syndrome [Unknown]
  - Toxicity to various agents [Unknown]

NARRATIVE: CASE EVENT DATE: 2017
